FAERS Safety Report 12106599 (Version 1)
Quarter: 2016Q1

REPORT INFORMATION
  Report Type: Spontaneous
  Country: US (occurrence: US)
  Receive Date: 20160223
  Receipt Date: 20160223
  Transmission Date: 20160526
  Serious: Yes (Life-Threatening)
  Sender: FDA-Public Use
  Company Number: US-BRACCO-012356

PATIENT
  Age: 67 Year
  Sex: Male
  Weight: 111 kg

DRUGS (8)
  1. METFORMIN [Concomitant]
     Active Substance: METFORMIN HYDROCHLORIDE
  2. ASA [Concomitant]
     Active Substance: ASPIRIN
  3. VASOTEC [Concomitant]
     Active Substance: ENALAPRIL MALEATE
  4. ALBUTEROL. [Concomitant]
     Active Substance: ALBUTEROL
  5. CORGARD [Concomitant]
     Active Substance: NADOLOL
  6. PLAVIX [Concomitant]
     Active Substance: CLOPIDOGREL BISULFATE
  7. ISOVUE 370 [Suspect]
     Active Substance: IOPAMIDOL
     Indication: CATHETERISATION CARDIAC
     Route: 013
     Dates: start: 20150708, end: 20150708
  8. INSULIN [Concomitant]
     Active Substance: INSULIN NOS

REACTIONS (1)
  - Ventricular fibrillation [Recovered/Resolved]

NARRATIVE: CASE EVENT DATE: 20150708
